FAERS Safety Report 4440695-X (Version None)
Quarter: 2004Q3

REPORT INFORMATION
  Report Type: 
  Country: None (occurrence: None)
  Receive Date: 20040903
  Receipt Date: 20040510
  Transmission Date: 20050211
  Serious: Yes (Disabling)
  Sender: FDA-Public Use
  Company Number: US-BRISTOL-MYERS SQUIBB COMPANY-12583985

PATIENT
  Age: 66 Year
  Sex: Female

DRUGS (9)
  1. ERBITUX [Suspect]
     Indication: COLORECTAL CANCER
     Dosage: 05APR04: LOADING DOSE OF 400 MG/M2 (730 MG); THEN 250 MG/M2 (460 MG)
     Route: 042
  2. CAMPTOSAR [Concomitant]
  3. LEUCOVORIN CALCIUM [Concomitant]
  4. FLUOROURACIL [Concomitant]
  5. ARANESP [Concomitant]
  6. ALOXI [Concomitant]
  7. SOLU-MEDROL [Concomitant]
  8. BENADRYL [Concomitant]
  9. TYLENOL [Concomitant]

REACTIONS (2)
  - ARTHRALGIA [None]
  - MYALGIA [None]
